FAERS Safety Report 8494599-6 (Version None)
Quarter: 2012Q3

REPORT INFORMATION
  Report Type: 
  Country: None (occurrence: None)
  Receive Date: 20120709
  Receipt Date: 20120627
  Transmission Date: 20120928
  Serious: Yes (Hospitalization, Other)
  Sender: FDA-Public Use
  Company Number: FR-JNJFOC-20120700264

PATIENT
  Sex: Female

DRUGS (2)
  1. REMICADE [Suspect]
     Route: 042
     Dates: start: 20120502
  2. REMICADE [Suspect]
     Indication: CROHN'S DISEASE
     Route: 042
     Dates: start: 20100505, end: 20120501

REACTIONS (5)
  - NAUSEA [None]
  - VOMITING [None]
  - SMALL INTESTINAL STENOSIS [None]
  - ABDOMINAL PAIN [None]
  - CROHN'S DISEASE [None]
